FAERS Safety Report 6896199-8 (Version None)
Quarter: 2010Q3

REPORT INFORMATION
  Report Type: 
  Country: None (occurrence: None)
  Receive Date: 20100802
  Receipt Date: 20100726
  Transmission Date: 20110219
  Serious: Yes (Death, Hospitalization)
  Sender: FDA-Public Use
  Company Number: A0872358A

PATIENT
  Age: 69 Year
  Sex: Male

DRUGS (6)
  1. HYCAMTIN [Suspect]
     Indication: URETERIC CANCER
     Dosage: 2.51U UNKNOWN
     Route: 042
     Dates: start: 20091130, end: 20091228
  2. ALIMTA [Concomitant]
  3. CAMPTOSAR [Concomitant]
  4. UNKNOWN [Concomitant]
  5. ARANESP [Concomitant]
  6. UNKNOWN [Concomitant]
     Indication: PRODUCT USED FOR UNKNOWN INDICATION
     Dates: start: 20091204

REACTIONS (3)
  - DEATH [None]
  - DRUG INEFFECTIVE [None]
  - RESPIRATORY FAILURE [None]
